FAERS Safety Report 7783085-4 (Version None)
Quarter: 2011Q3

REPORT INFORMATION
  Report Type: 
  Country: None (occurrence: None)
  Receive Date: 20110928
  Receipt Date: 20110923
  Transmission Date: 20111222
  Serious: Yes (Death)
  Sender: FDA-Public Use
  Company Number: DE-SANOFI-AVENTIS-2011SA056379

PATIENT
  Age: 69 Year
  Sex: Female

DRUGS (3)
  1. CAPECITABINE [Suspect]
     Route: 048
     Dates: start: 20101026, end: 20101105
  2. OXALIPLATIN [Suspect]
     Route: 042
     Dates: start: 20101026
  3. BEVACIZUMAB [Suspect]
     Route: 042
     Dates: start: 20101026

REACTIONS (1)
  - SEPSIS [None]
